FAERS Safety Report 21088941 (Version 2)
Quarter: 2022Q3

REPORT INFORMATION
  Report Type: Spontaneous
  Country: UY (occurrence: UY)
  Receive Date: 20220715
  Receipt Date: 20220722
  Transmission Date: 20221026
  Serious: Yes (Other)
  Sender: FDA-Public Use
  Company Number: UY-PFIZER INC-202200951842

PATIENT
  Age: 63 Year
  Sex: Male

DRUGS (1)
  1. AZULFIDINE [Suspect]
     Active Substance: SULFASALAZINE
     Indication: Colitis ulcerative
     Dosage: UNK

REACTIONS (8)
  - General physical health deterioration [Unknown]
  - Gastrointestinal inflammation [Unknown]
  - Frequent bowel movements [Unknown]
  - Condition aggravated [Unknown]
  - Weight decreased [Unknown]
  - Malaise [Unknown]
  - Quality of life decreased [Unknown]
  - Swelling [Unknown]

NARRATIVE: CASE EVENT DATE: 20220401
